FAERS Safety Report 17466629 (Version 1)
Quarter: 2020Q1

REPORT INFORMATION
  Report Type: Spontaneous
  Country: JP (occurrence: JP)
  Receive Date: 20200227
  Receipt Date: 20200227
  Transmission Date: 20200409
  Serious: Yes (Other)
  Sender: FDA-Public Use
  Company Number: NVSJ2020JP002108

PATIENT
  Sex: Female

DRUGS (1)
  1. RITALIN [Suspect]
     Active Substance: METHYLPHENIDATE HYDROCHLORIDE
     Indication: SOMNOLENCE
     Dosage: UNK
     Route: 048

REACTIONS (4)
  - Somnolence [Unknown]
  - Vomiting [Unknown]
  - Therapeutic product effect incomplete [Unknown]
  - Facial paralysis [Unknown]
